FAERS Safety Report 4290735-6 (Version None)
Quarter: 2004Q1

REPORT INFORMATION
  Report Type: 
  Country: None (occurrence: None)
  Receive Date: 20040209
  Receipt Date: 20040217
  Transmission Date: 20041129
  Serious: Yes (Hospitalization)
  Sender: FDA-Public Use
  Company Number: 2004001371

PATIENT
  Age: 66 Year
  Sex: 0

DRUGS (11)
  1. DOXAZOSIN MESYLATE [Suspect]
     Indication: HYPERTENSION
     Dosage: 4 MG DAILY, ORAL
     Route: 048
  2. RANITIDINE [Concomitant]
  3. GLICLAZIDE (GLICLAZIDE) [Concomitant]
  4. VALSARTAN (VALSARTAN) [Concomitant]
  5. FUROSEMIDE [Concomitant]
  6. ERYTHROMYCIN [Concomitant]
  7. METFORMIN HCL [Concomitant]
  8. HYDROXYZINE [Concomitant]
  9. FUCICORT (BETAMETHASONE VALERATE, FUSIDIC ACID) [Concomitant]
  10. POTASSIUM PERMANGANATE (POTASSIUM PERMANGANATE) [Concomitant]
  11. MADOPAR (LEVODOPA, BENSERAZIDE HYDROCHLORIDE) [Concomitant]

REACTIONS (6)
  - CELLULITIS [None]
  - EOSINOPHILIA [None]
  - ERYTHEMA [None]
  - NEUTROPHIL COUNT INCREASED [None]
  - OEDEMA [None]
  - OEDEMA PERIPHERAL [None]
